FAERS Safety Report 4503232-7 (Version None)
Quarter: 2004Q4

REPORT INFORMATION
  Report Type: 
  Country: None (occurrence: None)
  Receive Date: 20041112
  Receipt Date: 20041027
  Transmission Date: 20050328
  Serious: Yes (Hospitalization)
  Sender: FDA-Public Use
  Company Number: 2004241433ES

PATIENT
  Age: 65 Year
  Sex: Female

DRUGS (7)
  1. CAMPTO (IRINOTECAN) SOLUTION, STERILE [Suspect]
     Indication: COLORECTAL CANCER
     Dosage: 80 MG/M2, EVERY WEEK, IV
     Route: 042
     Dates: start: 20040616, end: 20041006
  2. TEGAFUR (TEGAFUR) [Suspect]
     Indication: COLORECTAL CANCER
     Dosage: 800 MG, CYCLIC, ORAL
     Route: 048
     Dates: start: 20040616, end: 20041006
  3. LEUCOVORIN CALCIUM [Suspect]
     Indication: COLORECTAL CANCER
     Dosage: 45 MG, CYCLIC, ORAL
     Route: 048
     Dates: start: 20040616, end: 20041006
  4. ALAPRYL (HALAZEPAM) [Concomitant]
  5. DEPRAX [Concomitant]
  6. MIRTAZAPINE [Concomitant]
  7. CITLAOPRAM [Concomitant]

REACTIONS (9)
  - ANXIETY [None]
  - BLOOD OSMOLARITY INCREASED [None]
  - CONFUSIONAL STATE [None]
  - DEPRESSION [None]
  - DIABETES MELLITUS [None]
  - HALLUCINATION [None]
  - MUCOSAL DRYNESS [None]
  - MUCOSAL INFLAMMATION [None]
  - RENAL FAILURE [None]
